FAERS Safety Report 6554365-5 (Version None)
Quarter: 2010Q1

REPORT INFORMATION
  Report Type: 
  Country: None (occurrence: None)
  Receive Date: 20100127
  Receipt Date: 20100121
  Transmission Date: 20100710
  Serious: Yes (Hospitalization, Other)
  Sender: FDA-Public Use
  Company Number: B0624100A

PATIENT
  Sex: Female
  Weight: 35.1 kg

DRUGS (13)
  1. VALTREX [Suspect]
     Indication: HERPES ZOSTER
     Dosage: 1000MG THREE TIMES PER DAY
     Route: 048
     Dates: start: 20091225, end: 20091226
  2. LOBU [Concomitant]
     Dosage: 180MG PER DAY
     Route: 048
     Dates: start: 20091225, end: 20091226
  3. MUCOSTA [Concomitant]
     Dosage: 300MG TWICE PER DAY
     Route: 048
  4. VASTAREL [Concomitant]
     Route: 048
     Dates: end: 20091226
  5. GANATON [Concomitant]
     Route: 048
     Dates: end: 20091226
  6. PLATIBIT [Concomitant]
     Route: 048
     Dates: end: 20091226
  7. ASPIRIN [Concomitant]
     Route: 048
     Dates: end: 20091226
  8. DIGOXIN [Concomitant]
     Route: 048
  9. TANATRIL [Concomitant]
     Route: 048
     Dates: end: 20091226
  10. NORVASC [Concomitant]
     Route: 048
     Dates: end: 20091226
  11. FRANDOL S [Concomitant]
     Route: 062
     Dates: end: 20091226
  12. DEPAS [Concomitant]
     Route: 048
     Dates: start: 20091226
  13. CHINESE MEDICINE [Concomitant]
     Route: 048
     Dates: end: 20091226

REACTIONS (5)
  - DEPRESSED LEVEL OF CONSCIOUSNESS [None]
  - ENCEPHALOPATHY [None]
  - NERVOUS SYSTEM DISORDER [None]
  - PSYCHIATRIC SYMPTOM [None]
  - RESTLESSNESS [None]
